FAERS Safety Report 19872900 (Version 1)
Quarter: 2021Q3

REPORT INFORMATION
  Report Type: Spontaneous
  Country: US (occurrence: US)
  Receive Date: 20210923
  Receipt Date: 20210923
  Transmission Date: 20211014
  Serious: Yes (Hospitalization)
  Sender: FDA-Public Use
  Company Number: None

PATIENT
  Sex: Female

DRUGS (11)
  1. ATORVASTATIN [Concomitant]
     Active Substance: ATORVASTATIN
  2. GLATIRAMER [Suspect]
     Active Substance: GLATIRAMER
     Indication: MULTIPLE SCLEROSIS
     Dosage: ?          OTHER FREQUENCY:TIW;?
     Route: 058
     Dates: start: 20180404
  3. LINZESS [Concomitant]
     Active Substance: LINACLOTIDE
  4. MELOXICAM. [Concomitant]
     Active Substance: MELOXICAM
  5. MULTIVITAMIN [Concomitant]
     Active Substance: VITAMINS
  6. MAGNESIUM [Concomitant]
     Active Substance: MAGNESIUM
  7. TYLENOL [Concomitant]
     Active Substance: ACETAMINOPHEN
  8. OMEPRAZOLE. [Concomitant]
     Active Substance: OMEPRAZOLE
  9. CALTRATE+D3 [Concomitant]
  10. PAROXETINE. [Concomitant]
     Active Substance: PAROXETINE
  11. FLAX SEED [Concomitant]
     Active Substance: FLAX SEED

REACTIONS (2)
  - Ankle fracture [None]
  - Fall [None]
